FAERS Safety Report 20638101 (Version 1)
Quarter: 2022Q1

REPORT INFORMATION
  Report Type: Report from Study
  Country: US (occurrence: US)
  Receive Date: 20220325
  Receipt Date: 20220325
  Transmission Date: 20220423
  Serious: Yes (Other)
  Sender: FDA-Public Use
  Company Number: US-NOVARTISPH-NVSC2022US067278

PATIENT
  Sex: Female

DRUGS (1)
  1. ENTRESTO [Suspect]
     Active Substance: SACUBITRIL\VALSARTAN
     Indication: Product used for unknown indication
     Route: 065

REACTIONS (6)
  - Cardiac failure congestive [Unknown]
  - Congestive cardiomyopathy [Unknown]
  - Cardiac failure chronic [Unknown]
  - Cardiac valve disease [Unknown]
  - Chronic left ventricular failure [Unknown]
  - Hypertension [Unknown]
